FAERS Safety Report 4526833-9 (Version None)
Quarter: 2004Q4

REPORT INFORMATION
  Report Type: 
  Country: None (occurrence: None)
  Receive Date: 20041213
  Receipt Date: 20041119
  Transmission Date: 20050328
  Serious: Yes (Hospitalization, Other)
  Sender: FDA-Public Use
  Company Number: A-US2004-08303

PATIENT
  Age: 46 Year
  Sex: Female

DRUGS (4)
  1. TRACLEER [Suspect]
     Indication: PULMONARY HYPERTENSION
     Dosage: ORAL
     Route: 048
     Dates: start: 20031001, end: 20040801
  2. COUMADIN [Concomitant]
  3. FLOLAN [Concomitant]
  4. SILDENAFIL (SILDENAFIL) [Concomitant]

REACTIONS (14)
  - ASCITES [None]
  - BLOOD ALBUMIN DECREASED [None]
  - CATHETER RELATED INFECTION [None]
  - CHOLELITHIASIS [None]
  - COLON NEOPLASM [None]
  - DRUG TOXICITY [None]
  - HAEMOGLOBIN DECREASED [None]
  - HEPATITIS [None]
  - HEPATOTOXICITY [None]
  - INFLAMMATION LOCALISED [None]
  - LYMPHADENOPATHY [None]
  - PLATELET COUNT DECREASED [None]
  - PROTHROMBIN TIME PROLONGED [None]
  - SPLENOMEGALY [None]
